FAERS Safety Report 4568213-6 (Version None)
Quarter: 2005Q1

REPORT INFORMATION
  Report Type: 
  Country: None (occurrence: None)
  Receive Date: 20050131
  Receipt Date: 20050118
  Transmission Date: 20050727
  Serious: Yes (Death)
  Sender: FDA-Public Use
  Company Number: K200500109

PATIENT
  Age: 24 Year
  Sex: Female
  Weight: 55.6 kg

DRUGS (7)
  1. EPINEPHRINE [Suspect]
     Indication: RESUSCITATION
     Dosage: 1 MG
  2. DOPAMINE (DOPAMINE) [Concomitant]
  3. POTASSIUM ASPARTATE [Concomitant]
  4. FUROSEMIDE (FUROSEMIDE) [Concomitant]
  5. HYDROCORTISONE [Concomitant]
  6. BROMPERIDOL (BROMPERIDOL) [Concomitant]
  7. CHLORPROMAZINE [Concomitant]

REACTIONS (11)
  - BLOOD CALCIUM DECREASED [None]
  - BLOOD CHLORIDE DECREASED [None]
  - BLOOD PHOSPHORUS DECREASED [None]
  - BLOOD POTASSIUM DECREASED [None]
  - BLOOD SODIUM DECREASED [None]
  - CARDIO-RESPIRATORY ARREST [None]
  - HYDRONEPHROSIS [None]
  - MEDICATION ERROR [None]
  - PITUITARY CYST [None]
  - URETERIC STENOSIS [None]
  - VOMITING [None]
